FAERS Safety Report 4839297-2 (Version None)
Quarter: 2005Q4

REPORT INFORMATION
  Report Type: 
  Country: None (occurrence: None)
  Receive Date: 20051129
  Receipt Date: 20041206
  Transmission Date: 20060501
  Serious: No
  Sender: FDA-Public Use
  Company Number: US-GLAXOSMITHKLINE-A0536508A

PATIENT
  Age: 48 Year
  Sex: Male

DRUGS (7)
  1. WELLBUTRIN SR [Suspect]
     Indication: DEPRESSION
     Dosage: 150MG TWICE PER DAY
     Route: 048
  2. WELLBUTRIN XL [Suspect]
     Indication: DRUG USE FOR UNKNOWN INDICATION
     Dosage: 300MG PER DAY
     Route: 048
     Dates: start: 20040601, end: 20041001
  3. DEPAKOTE [Concomitant]
     Dosage: 500MG TWICE PER DAY
     Route: 048
     Dates: start: 20020301
  4. POTASSIUM SUPPLEMENT [Concomitant]
  5. AMBIEN [Concomitant]
     Indication: INSOMNIA
     Dosage: 10MG AT NIGHT
     Route: 048
     Dates: start: 20040801
  6. PERCOCET [Concomitant]
     Route: 048
     Dates: start: 20041201
  7. LOPRESSOR [Concomitant]
     Indication: HYPERTENSION
     Route: 048

REACTIONS (2)
  - MEDICATION RESIDUE [None]
  - PHARMACEUTICAL PRODUCT COMPLAINT [None]
